FAERS Safety Report 7357740-4 (Version None)
Quarter: 2011Q1

REPORT INFORMATION
  Report Type: 
  Country: None (occurrence: None)
  Receive Date: 20110309
  Receipt Date: 20110302
  Transmission Date: 20110831
  Serious: Yes (Death)
  Sender: FDA-Public Use
  Company Number: 1000018628

PATIENT
  Sex: Female

DRUGS (1)
  1. ROFLUMILAST (ROFLUMILAST) (500 MILLIGRAM, TABLETS) [Suspect]
     Indication: CHRONIC OBSTRUCTIVE PULMONARY DISEASE
     Dosage: ORAL
     Route: 048
     Dates: start: 20101101, end: 20101101

REACTIONS (2)
  - RESPIRATORY FAILURE [None]
  - DRUG INEFFECTIVE [None]
